FAERS Safety Report 17525075 (Version 2)
Quarter: 2020Q2

REPORT INFORMATION
  Report Type: Spontaneous
  Country: DE (occurrence: DE)
  Receive Date: 20200311
  Receipt Date: 20200410
  Transmission Date: 20200713
  Serious: Yes (Other)
  Sender: FDA-Public Use
  Company Number: DE-TEVA-2020-DE-1196352

PATIENT
  Age: 3 Year
  Sex: Male
  Weight: 16 kg

DRUGS (4)
  1. AMOXICILLIN. [Suspect]
     Active Substance: AMOXICILLIN
     Indication: PYREXIA
  2. AMOXICILLIN. [Suspect]
     Active Substance: AMOXICILLIN
     Indication: TONSILLITIS
     Dosage: 3 BY 6 ML (DOCTOR-DETERMINED DOSE)
     Route: 048
     Dates: start: 20200215, end: 20200215
  3. AMOXICILLIN. [Suspect]
     Active Substance: AMOXICILLIN
     Indication: PHARYNGITIS
  4. AMOXICILLIN. [Suspect]
     Active Substance: AMOXICILLIN
     Indication: PHARYNGEAL INFLAMMATION

REACTIONS (5)
  - Somnolence [Recovering/Resolving]
  - Vomiting [Recovering/Resolving]
  - Unresponsive to stimuli [Recovering/Resolving]
  - Abdominal pain upper [Recovering/Resolving]
  - Apathy [Recovering/Resolving]

NARRATIVE: CASE EVENT DATE: 20200215
